FAERS Safety Report 25219019 (Version 1)
Quarter: 2025Q2

REPORT INFORMATION
  Report Type: Spontaneous
  Country: CN (occurrence: CN)
  Receive Date: 20250421
  Receipt Date: 20250421
  Transmission Date: 20250717
  Serious: Yes (Hospitalization)
  Sender: NOVARTIS
  Company Number: CN-002147023-NVSC2025CN064402

PATIENT
  Sex: Male

DRUGS (2)
  1. DIOVAN [Suspect]
     Active Substance: VALSARTAN
     Indication: Product used for unknown indication
     Route: 048
  2. DIOVAN [Suspect]
     Active Substance: VALSARTAN
     Route: 048

REACTIONS (6)
  - Conjunctival hyperaemia [Unknown]
  - Conjunctival oedema [Unknown]
  - Insomnia [Unknown]
  - Dizziness [Unknown]
  - Discomfort [Unknown]
  - Adverse drug reaction [Unknown]

NARRATIVE: CASE EVENT DATE: 20250301
